FAERS Safety Report 5025454-1 (Version None)
Quarter: 2006Q2

REPORT INFORMATION
  Report Type: 
  Country: None (occurrence: None)
  Receive Date: 20060608
  Receipt Date: 20060525
  Transmission Date: 20061013
  Serious: Yes (Hospitalization)
  Sender: FDA-Public Use
  Company Number: WAES 0603USA03508

PATIENT
  Age: 57 Year
  Sex: Male

DRUGS (7)
  1. DECADRON [Suspect]
     Dosage: SEE IMAGE
     Route: 048
     Dates: end: 20051019
  2. DECADRON [Suspect]
     Dosage: SEE IMAGE
     Route: 048
     Dates: start: 20051123, end: 20051130
  3. DECADRON [Suspect]
     Dosage: SEE IMAGE
     Route: 048
     Dates: start: 20051201, end: 20051213
  4. DECADRON [Suspect]
     Dosage: SEE IMAGE
     Route: 048
     Dates: start: 20051214
  5. STUDY DRUG [Suspect]
     Indication: GLIOBLASTOMA MULTIFORME
     Dates: start: 20050607
  6. COUMADIN [Concomitant]
  7. KEPPRA [Concomitant]

REACTIONS (5)
  - BRONCHITIS [None]
  - CARDIAC FAILURE CONGESTIVE [None]
  - PNEUMOCYSTIS JIROVECI INFECTION [None]
  - PNEUMONITIS [None]
  - SUBDURAL HAEMATOMA [None]
